FAERS Safety Report 7786840-X (Version None)
Quarter: 2011Q3

REPORT INFORMATION
  Report Type: 
  Country: None (occurrence: None)
  Receive Date: 20110929
  Receipt Date: 20110926
  Transmission Date: 20111222
  Serious: Yes (Death, Hospitalization, Other)
  Sender: FDA-Public Use
  Company Number: ES-PFIZER INC-2010105799

PATIENT
  Age: 93 Year
  Sex: Female

DRUGS (6)
  1. SINEMET [Concomitant]
     Indication: PARKINSON'S DISEASE
     Dosage: UNK
     Route: 048
     Dates: start: 20080101
  2. ALDACTONE [Suspect]
     Dosage: 25 MG, 1X/DAY
     Dates: start: 20110101, end: 20110408
  3. OMEPRAZOLE [Concomitant]
     Indication: GASTRITIS ATROPHIC
     Dosage: 20 MG, 1X/DAY
     Route: 048
     Dates: start: 20090101
  4. ENALAPRIL [Suspect]
     Dosage: 2.5 MG, 1X/DAY
     Dates: start: 20110101, end: 20110408
  5. PARACETAMOL [Concomitant]
     Indication: ARTHRALGIA
     Dosage: 2 G, 1X/DAY
     Route: 048
     Dates: start: 20090101
  6. ALDACTONE [Suspect]
     Indication: CARDIAC FAILURE
     Dosage: 5 MG, 1X/DAY
     Route: 048
     Dates: start: 20080101, end: 20100115

REACTIONS (4)
  - ASPIRATION [None]
  - HYPERKALAEMIA [None]
  - ATRIOVENTRICULAR BLOCK FIRST DEGREE [None]
  - ATRIOVENTRICULAR BLOCK COMPLETE [None]
